FAERS Safety Report 13803248 (Version 1)
Quarter: 2017Q3

REPORT INFORMATION
  Report Type: Report from Study
  Country: US (occurrence: US)
  Receive Date: 20170728
  Receipt Date: 20170728
  Transmission Date: 20171127
  Serious: Yes (Death)
  Sender: FDA-Public Use
  Company Number: US-PFIZER INC-2017320777

PATIENT
  Sex: Female

DRUGS (1)
  1. METHOTREXATE SODIUM. [Suspect]
     Active Substance: METHOTREXATE SODIUM
     Indication: BREAST CANCER
     Dosage: 47.5 MG, UNK (IN DIVIDED DOSES)

REACTIONS (7)
  - Jaundice [Fatal]
  - Gastrointestinal toxicity [Fatal]
  - Toxicity to various agents [Fatal]
  - Bacterial sepsis [Fatal]
  - Shock [Fatal]
  - Azotaemia [Fatal]
  - Bone marrow toxicity [Fatal]
